FAERS Safety Report 8473298-0 (Version None)
Quarter: 2012Q2

REPORT INFORMATION
  Report Type: 
  Country: None (occurrence: None)
  Receive Date: 20120628
  Receipt Date: 20120621
  Transmission Date: 20120825
  Serious: Yes (Hospitalization)
  Sender: FDA-Public Use
  Company Number: DE-TEVA-344436GER

PATIENT
  Sex: Female
  Weight: 60 kg

DRUGS (5)
  1. TAXOL [Suspect]
     Route: 042
     Dates: start: 20120322, end: 20120601
  2. CARBOPLATIN [Suspect]
     Dosage: AUC 2
     Route: 042
     Dates: start: 20120322, end: 20120601
  3. LAPATINIB [Suspect]
     Indication: BREAST CANCER
     Dosage: 500 MILLIGRAM;
     Route: 048
     Dates: start: 20120322
  4. DOXORUBICIN HCL [Suspect]
     Indication: BREAST CANCER
     Route: 042
     Dates: start: 20120322, end: 20120601
  5. HERCEPTIN [Suspect]
     Indication: BREAST CANCER
     Route: 042
     Dates: start: 20120322, end: 20120601

REACTIONS (1)
  - COLITIS [None]
